APPROVED DRUG PRODUCT: ENOXAPARIN SODIUM
Active Ingredient: ENOXAPARIN SODIUM
Strength: 300MG/3ML (100MG/ML)
Dosage Form/Route: INJECTABLE;INTRAVENOUS, SUBCUTANEOUS
Application: A214856 | Product #001 | TE Code: AB
Applicant: EMERGE BIOSCIENCE PTE LTD
Approved: Jun 14, 2022 | RLD: No | RS: No | Type: RX